FAERS Safety Report 8329147-4 (Version None)
Quarter: 2012Q2

REPORT INFORMATION
  Report Type: 
  Country: None (occurrence: None)
  Receive Date: 20120502
  Receipt Date: 20120423
  Transmission Date: 20120825
  Serious: Yes (Other)
  Sender: FDA-Public Use
  Company Number: US-VERTEX PHARMACEUTICALS INC.-AE-2012-005744

PATIENT
  Sex: Male

DRUGS (7)
  1. VIAGRA [Concomitant]
  2. INCIVEK [Concomitant]
  3. INCIVEK [Suspect]
     Indication: HEPATITIS C
     Route: 048
  4. RIBASPHERE [Concomitant]
     Indication: HEPATITIS C
     Route: 048
  5. PEGASYS [Concomitant]
     Indication: HEPATITIS C
  6. MELOXICAM [Concomitant]
  7. ACYCLOVIR [Concomitant]

REACTIONS (1)
  - APPENDICITIS [None]
